FAERS Safety Report 18251068 (Version 2)
Quarter: 2020Q3

REPORT INFORMATION
  Report Type: Report from Study
  Country: None (occurrence: US)
  Receive Date: 20200910
  Receipt Date: 20200917
  Transmission Date: 20201103
  Serious: Yes (Hospitalization, Other)
  Sender: FDA-Public Use
  Company Number: US-ABBVIE-20K-163-3542921-00

PATIENT
  Age: 73 Year
  Sex: Female
  Weight: 63.11 kg

DRUGS (17)
  1. SOLIFENACIN SUCCINATE. [Concomitant]
     Active Substance: SOLIFENACIN SUCCINATE
     Indication: BENIGN PROSTATIC HYPERPLASIA
     Dosage: 1 TABLET
     Route: 048
  2. HORSE CHESTNUT [Concomitant]
     Active Substance: HORSE CHESTNUT
     Indication: PRODUCT USED FOR UNKNOWN INDICATION
     Dosage: 1 CAPSULE
     Route: 048
  3. DUOPA [Suspect]
     Active Substance: CARBIDOPA\LEVODOPA
     Indication: PRODUCT USED FOR UNKNOWN INDICATION
     Route: 050
     Dates: start: 20160718, end: 2016
  4. DUOPA [Suspect]
     Active Substance: CARBIDOPA\LEVODOPA
     Route: 050
     Dates: start: 20161010
  5. BOOST TESTOSTERONE [Concomitant]
     Indication: PRODUCT USED FOR UNKNOWN INDICATION
     Dosage: 3 DOSES
     Route: 048
  6. LUTEIN [Concomitant]
     Active Substance: LUTEIN
     Indication: PRODUCT USED FOR UNKNOWN INDICATION
     Dosage: 1000?60?2 MG, 3 CAPSULES
     Route: 048
  7. SAW PALMETTO [Concomitant]
     Active Substance: HERBALS\SAW PALMETTO
     Indication: SUPPLEMENTATION THERAPY
     Dosage: 2 CAPSULE
     Route: 048
  8. TURMERIC [Concomitant]
     Active Substance: HERBALS\TURMERIC
     Indication: SUPPLEMENTATION THERAPY
     Dosage: 2 CAPSULE
     Route: 048
  9. PRAMIPEXOLE. [Concomitant]
     Active Substance: PRAMIPEXOLE
     Indication: PARKINSON^S DISEASE
     Route: 048
  10. PRAMIPEXOLE DIHYDROCHLORIDE. [Concomitant]
     Active Substance: PRAMIPEXOLE DIHYDROCHLORIDE
     Indication: PRODUCT USED FOR UNKNOWN INDICATION
     Route: 048
  11. FLAXSEED [Concomitant]
     Active Substance: FLAX SEED
     Indication: ARTHROPATHY
     Dosage: 3 CAPSULES
     Route: 048
  12. BOOST [Concomitant]
     Active Substance: DIETARY SUPPLEMENT
     Indication: PRODUCT USED FOR UNKNOWN INDICATION
     Dosage: 2 DOSES?SCULTP NATION HIGH
     Route: 048
  13. SCULPT NATION TESTOSTERONE [Concomitant]
     Indication: IMMUNISATION
  14. GLUCOSAMINE [Concomitant]
     Active Substance: GLUCOSAMINE
     Indication: ARTHROPATHY
     Dosage: 2 TABLET
     Route: 048
  15. NIACINAMIDE [Concomitant]
     Active Substance: NIACINAMIDE
     Indication: ARTHROPATHY
     Route: 048
  16. RYTARY [Concomitant]
     Active Substance: CARBIDOPA\LEVODOPA
     Indication: PARKINSON^S DISEASE
  17. VISION FORMULA WITH LUTEIN [Concomitant]
     Indication: EYE DISORDER

REACTIONS (3)
  - Insomnia [Unknown]
  - Behaviour disorder [Recovering/Resolving]
  - Rotator cuff syndrome [Recovering/Resolving]

NARRATIVE: CASE EVENT DATE: 202006
